FAERS Safety Report 6622001-5 (Version None)
Quarter: 2010Q1

REPORT INFORMATION
  Report Type: 
  Country: None (occurrence: None)
  Receive Date: 20100302
  Receipt Date: 20100219
  Transmission Date: 20100710
  Serious: Yes (Hospitalization, Other)
  Sender: FDA-Public Use
  Company Number: 2010SP010500

PATIENT
  Sex: Male

DRUGS (1)
  1. INTRON A [Suspect]
     Indication: DRUG USE FOR UNKNOWN INDICATION
     Dates: end: 20100217

REACTIONS (1)
  - HIP SURGERY [None]
